FAERS Safety Report 4322656-4 (Version None)
Quarter: 2004Q1

REPORT INFORMATION
  Report Type: 
  Country: None (occurrence: None)
  Receive Date: 20040324
  Receipt Date: 20031229
  Transmission Date: 20041129
  Serious: No
  Sender: FDA-Public Use
  Company Number: US-BRISTOL-MYERS SQUIBB COMPANY-12466462

PATIENT
  Age: 16 Year
  Sex: Male

DRUGS (3)
  1. REYATAZ [Suspect]
     Indication: HIV INFECTION
     Route: 048
     Dates: start: 20031109, end: 20031214
  2. VIDEX EC [Concomitant]
  3. ABACAVIR [Concomitant]

REACTIONS (2)
  - BLOOD BILIRUBIN INCREASED [None]
  - OCULAR ICTERUS [None]
